FAERS Safety Report 9525469 (Version 1)
Quarter: 2013Q3

REPORT INFORMATION
  Report Type: Spontaneous
  Country: US (occurrence: None)
  Receive Date: 20130913
  Receipt Date: 20130913
  Transmission Date: 20140515
  Serious: Yes (Hospitalization)
  Sender: FDA-Public Use
  Company Number: None

PATIENT
  Age: 92 Year
  Sex: Male
  Weight: 70 kg

DRUGS (1)
  1. PRADAXA [Suspect]
     Indication: ATRIAL FIBRILLATION
     Dosage: 1 PILL, BID, ORAL
     Route: 048

REACTIONS (7)
  - Fall [None]
  - Convulsion [None]
  - Haematocrit decreased [None]
  - Urinary incontinence [None]
  - Postictal state [None]
  - Gastrointestinal haemorrhage [None]
  - Asthenia [None]
